FAERS Safety Report 4831954-7 (Version None)
Quarter: 2005Q4

REPORT INFORMATION
  Report Type: 
  Country: None (occurrence: None)
  Receive Date: 20051118
  Receipt Date: 20051020
  Transmission Date: 20060501
  Serious: Yes (Hospitalization)
  Sender: FDA-Public Use
  Company Number: FRWYE077321OCT05

PATIENT
  Age: 73 Year
  Sex: Male

DRUGS (3)
  1. ENBREL [Suspect]
     Indication: RHEUMATOID ARTHRITIS
     Route: 058
     Dates: start: 20040101, end: 20050901
  2. KETEK [Suspect]
     Indication: PNEUMONIA
     Dosage: UNKNOWN
  3. ROCEPHIN [Concomitant]

REACTIONS (6)
  - CHOLESTASIS [None]
  - ESCHERICHIA BACTERAEMIA [None]
  - ESCHERICHIA URINARY TRACT INFECTION [None]
  - INFECTIVE SPONDYLITIS [None]
  - PYELONEPHRITIS [None]
  - RENAL FAILURE ACUTE [None]
